FAERS Safety Report 24613369 (Version 1)
Quarter: 2024Q4

REPORT INFORMATION
  Report Type: Spontaneous
  Country: US (occurrence: US)
  Receive Date: 20241113
  Receipt Date: 20241113
  Transmission Date: 20250115
  Serious: No
  Sender: NOVARTIS
  Company Number: US-002147023-NVSC2024US218196

PATIENT
  Sex: Female

DRUGS (2)
  1. COSENTYX [Suspect]
     Active Substance: SECUKINUMAB
     Indication: Psoriatic arthropathy
     Dosage: 300 MG, QMO (2X150 MG SYRINGE, MONTHLY)
     Route: 065
  2. COSENTYX [Suspect]
     Active Substance: SECUKINUMAB
     Indication: Skin disorder

REACTIONS (5)
  - Pain [Unknown]
  - Eye disorder [Unknown]
  - Incorrect dose administered [Unknown]
  - Product use complaint [Unknown]
  - Needle issue [Unknown]

NARRATIVE: CASE EVENT DATE: 20241018
